FAERS Safety Report 6376388-1 (Version None)
Quarter: 2009Q3

REPORT INFORMATION
  Report Type: 
  Country: None (occurrence: None)
  Receive Date: 20090925
  Receipt Date: 20070605
  Transmission Date: 20100115
  Serious: Yes (Hospitalization, Other)
  Sender: FDA-Public Use
  Company Number: US-ASTRAZENECA-2006UW22452

PATIENT
  Age: 35 Year
  Sex: Female
  Weight: 119.3 kg

DRUGS (14)
  1. SEROQUEL [Suspect]
     Indication: DEPRESSION
     Route: 048
     Dates: start: 20030101
  2. SEROQUEL [Suspect]
     Indication: BIPOLAR DISORDER
     Route: 048
     Dates: start: 20030101
  3. SEROQUEL [Suspect]
     Dosage: 25-200 MG
     Route: 048
     Dates: start: 20041115
  4. SEROQUEL [Suspect]
     Dosage: 25-200 MG
     Route: 048
     Dates: start: 20041115
  5. GEODON [Suspect]
     Dates: start: 20060129
  6. REMERON [Concomitant]
     Indication: SLEEP DISORDER
     Dates: start: 20030101
  7. ZOLOFT [Concomitant]
     Dosage: 50-100 MG
     Dates: start: 20040617
  8. CYMBALTA [Concomitant]
     Dates: start: 20041216
  9. DEPAKOTE [Concomitant]
     Indication: HEADACHE
     Dates: start: 20060103
  10. DEPAKOTE [Concomitant]
     Indication: MIGRAINE
     Dates: start: 20060103
  11. LUNESTA [Concomitant]
     Indication: INSOMNIA
     Dates: start: 20060618
  12. SINGULAIR [Concomitant]
     Indication: CHRONIC OBSTRUCTIVE PULMONARY DISEASE
     Dates: start: 20060618
  13. LEXAPRO [Concomitant]
     Indication: DEPRESSION
     Dates: start: 20060703
  14. LEXAPRO [Concomitant]
     Indication: POST-TRAUMATIC STRESS DISORDER
     Dates: start: 20060703

REACTIONS (9)
  - ASTHMA [None]
  - CHRONIC OBSTRUCTIVE PULMONARY DISEASE [None]
  - DIABETES MELLITUS [None]
  - DIABETES MELLITUS INADEQUATE CONTROL [None]
  - DIVERTICULITIS [None]
  - HYPERGLYCAEMIA [None]
  - HYPOXIA [None]
  - PNEUMONIA [None]
  - TYPE 2 DIABETES MELLITUS [None]
